FAERS Safety Report 8903596 (Version 2)
Quarter: 2013Q2

REPORT INFORMATION
  Report Type: Report from Study
  Country: US (occurrence: US)
  Receive Date: 20121113
  Receipt Date: 20130502
  Transmission Date: 20140414
  Serious: Yes (Congenital Anomaly, Other)
  Sender: FDA-Public Use
  Company Number: US-UCBSA-070704

PATIENT
  Age: 0 None
  Sex: Male

DRUGS (7)
  1. KEPPRA XR [Suspect]
     Indication: EPILEPSY
     Dosage: DOSE: 3500
     Route: 064
     Dates: start: 20111024, end: 20120111
  2. KEPPRA XR [Suspect]
     Indication: EPILEPSY
     Dosage: DOSE: 3000
     Route: 064
     Dates: start: 20110515, end: 20111024
  3. TRILEPTAL [Concomitant]
     Indication: EPILEPSY
     Dosage: DOSE: 1500
     Route: 064
     Dates: start: 20110515, end: 20110818
  4. TRILEPTAL [Concomitant]
     Indication: EPILEPSY
     Dosage: DOSE: 1450
     Route: 064
     Dates: start: 20110818, end: 20111024
  5. TRILEPTAL [Concomitant]
     Indication: EPILEPSY
     Dosage: DOSE: 1800
     Route: 064
     Dates: start: 20111024
  6. TRILEPTAL [Concomitant]
     Indication: EPILEPSY
     Dosage: DOSE: 2100
     Route: 064
     Dates: end: 20120111
  7. ATIVAN [Concomitant]
     Route: 064

REACTIONS (8)
  - Urethral valves [Not Recovered/Not Resolved]
  - Hypospadias [Not Recovered/Not Resolved]
  - Hydronephrosis [Not Recovered/Not Resolved]
  - Premature baby [Unknown]
  - Congenital bladder anomaly [Not Recovered/Not Resolved]
  - Hydroureter [Unknown]
  - Foetal exposure during pregnancy [Recovered/Resolved]
  - Electrolyte imbalance [Unknown]
